FAERS Safety Report 8183952-6 (Version None)
Quarter: 2012Q1

REPORT INFORMATION
  Report Type: 
  Country: None (occurrence: None)
  Receive Date: 20120305
  Receipt Date: 20120304
  Transmission Date: 20120608
  Serious: No
  Sender: FDA-Public Use
  Company Number: US-PFIZER INC-2012057642

PATIENT
  Sex: Female
  Weight: 104.76 kg

DRUGS (7)
  1. CARISOPRODOL [Concomitant]
     Indication: MUSCLE SPASMS
     Dosage: 350 MG, 3X/DAY
  2. TEMAZEPAM [Concomitant]
     Indication: SLEEP DISORDER
     Dosage: 30 MG, 1X/DAY
  3. MORPHINE [Concomitant]
     Dosage: 50 MG, 3X/DAY
  4. CHANTIX [Suspect]
     Indication: SMOKING CESSATION THERAPY
     Dosage: 0.5 MG, 1X/DAY
     Route: 048
     Dates: start: 20120302
  5. DIAZEPAM [Concomitant]
     Dosage: 10 MG, 2X/DAY
  6. FENTANYL [Concomitant]
     Indication: PAIN
     Dosage: 25 MG, EVERY 72 HOURS
     Route: 062
  7. LYRICA [Concomitant]
     Indication: PAIN
     Dosage: 150 MG, 3X/DAY

REACTIONS (1)
  - STRESS [None]
